FAERS Safety Report 11095071 (Version 5)
Quarter: 2017Q3

REPORT INFORMATION
  Report Type: Spontaneous
  Country: US (occurrence: US)
  Receive Date: 20150506
  Receipt Date: 20170822
  Transmission Date: 20171127
  Serious: Yes (Hospitalization)
  Sender: FDA-Public Use
  Company Number: US-SA-2014SA056948

PATIENT
  Age: 64 Year
  Sex: Male

DRUGS (12)
  1. SOLOSTAR [Suspect]
     Active Substance: DEVICE
     Indication: TYPE 1 DIABETES MELLITUS
  2. SOLOSTAR [Suspect]
     Active Substance: DEVICE
     Indication: TYPE 1 DIABETES MELLITUS
  3. SOLOSTAR [Suspect]
     Active Substance: DEVICE
     Indication: TYPE 1 DIABETES MELLITUS
     Route: 058
  4. SOLOSTAR [Concomitant]
     Active Substance: DEVICE
  5. SOLOSTAR [Concomitant]
     Active Substance: DEVICE
  6. LEVEMIR [Concomitant]
     Active Substance: INSULIN DETEMIR
     Dosage: 27 U IN MORNING AND 7 U AT NIGHT
     Route: 065
  7. LANTUS SOLOSTAR [Concomitant]
     Active Substance: INSULIN GLARGINE
     Indication: TYPE 1 DIABETES MELLITUS
     Dosage: HE TOOK 27-28 IN THE AFTERNOON AND 6-8 UNITS AT NIGHT
  8. APIDRA SOLOSTAR [Suspect]
     Active Substance: INSULIN GLULISINE
     Indication: TYPE 1 DIABETES MELLITUS
     Dosage: DOSE AND FREQUENCY: VARIES/CARB COUNTING
     Route: 058
  9. APIDRA SOLOSTAR [Suspect]
     Active Substance: INSULIN GLULISINE
     Indication: TYPE 1 DIABETES MELLITUS
     Dosage: DOSE AND FREQUENCY: SLIDING SCALE WITH  MEALS
     Route: 058
  10. APIDRA SOLOSTAR [Suspect]
     Active Substance: INSULIN GLULISINE
     Indication: TYPE 1 DIABETES MELLITUS
     Dosage: DOSE OF 4-6 UNITS 3 TID WITH 8-10 IF BLOOD SUGAR UP?HE IS CURRENTLY USING 3/10 UNITS TID
     Route: 058
  11. HUMULIN NOS [Concomitant]
     Active Substance: INSULIN HUMAN
  12. TOUJEO [Concomitant]
     Active Substance: INSULIN GLARGINE

REACTIONS (18)
  - Gastric infection [Unknown]
  - Malaise [Unknown]
  - Pneumonia [Unknown]
  - Amnesia [Unknown]
  - Drug effect decreased [Unknown]
  - Muscle spasms [Recovered/Resolved]
  - Hernia repair [Unknown]
  - Peptic ulcer [Unknown]
  - Transient ischaemic attack [Unknown]
  - Polydipsia [Recovered/Resolved]
  - Impaired gastric emptying [Unknown]
  - Blood testosterone decreased [Unknown]
  - Blood glucose increased [Not Recovered/Not Resolved]
  - Blood glucose increased [Recovered/Resolved]
  - Injection site mass [Recovered/Resolved]
  - Product storage error [Unknown]
  - Drug ineffective [Unknown]
  - Drug dose omission [Unknown]

NARRATIVE: CASE EVENT DATE: 20170809
